FAERS Safety Report 8764426 (Version 1)
Quarter: 2012Q4

REPORT INFORMATION
  Report Type: 
  Country: US (occurrence: US)
  Receive Date: 20120831
  Receipt Date: 20120831
  Transmission Date: 20130627
  Serious: Yes (Other)
  Sender: FDA-Public Use
  Company Number: US-ELI_LILLY_AND_COMPANY-US201208009099

PATIENT
  Sex: Female

DRUGS (1)
  1. HUMATROPE [Suspect]
     Indication: DWARFISM
     Dosage: 0.2 UNK, UNK
     Dates: start: 20101020

REACTIONS (1)
  - Knee arthroplasty [Recovering/Resolving]
